FAERS Safety Report 21320158 (Version 2)
Quarter: 2022Q4

REPORT INFORMATION
  Report Type: Spontaneous
  Country: US (occurrence: US)
  Receive Date: 20220911
  Receipt Date: 20221010
  Transmission Date: 20230112
  Serious: No
  Sender: FDA-Public Use
  Company Number: US-SA-2022SA370070

PATIENT
  Age: 30 Year
  Sex: Male

DRUGS (4)
  1. ELOCTATE [Suspect]
     Active Substance: EFMOROCTOCOG ALFA
     Dosage: 6886 IU, BIW (TWICE A WEEK AND PRN)
     Route: 041
  2. ELOCTATE [Suspect]
     Active Substance: EFMOROCTOCOG ALFA
     Dosage: 6886 IU, BIW (TWICE A WEEK AND PRN)
     Route: 041
  3. ELOCTATE [Suspect]
     Active Substance: EFMOROCTOCOG ALFA
     Dosage: 6886 UNK
     Route: 042
  4. ELOCTATE [Suspect]
     Active Substance: EFMOROCTOCOG ALFA
     Dosage: 6886 UNK
     Route: 042

REACTIONS (4)
  - Pain [Recovering/Resolving]
  - Weight decreased [Unknown]
  - Ketogenic diet [Unknown]
  - Coccydynia [Not Recovered/Not Resolved]

NARRATIVE: CASE EVENT DATE: 20220923
